FAERS Safety Report 8022397-6 (Version None)
Quarter: 2012Q1

REPORT INFORMATION
  Report Type: 
  Country: None (occurrence: None)
  Receive Date: 20120104
  Receipt Date: 20111221
  Transmission Date: 20120608
  Serious: Yes (Other)
  Sender: FDA-Public Use
  Company Number: US-ROCHE-783906

PATIENT
  Sex: Female
  Weight: 72.64 kg

DRUGS (3)
  1. ACCUTANE [Suspect]
     Indication: ACNE
     Route: 048
     Dates: start: 19890301, end: 19890901
  2. AZULFIDINE [Concomitant]
  3. KENALOG [Concomitant]
     Dosage: 3.3 MG PER CC

REACTIONS (9)
  - IRRITABLE BOWEL SYNDROME [None]
  - BLOOD TRIGLYCERIDES INCREASED [None]
  - INFLAMMATORY BOWEL DISEASE [None]
  - HAEMORRHOIDS [None]
  - DEPRESSION [None]
  - BLOOD CHOLESTEROL INCREASED [None]
  - COLITIS ULCERATIVE [None]
  - IRON DEFICIENCY ANAEMIA [None]
  - LOW DENSITY LIPOPROTEIN INCREASED [None]
